FAERS Safety Report 9948729 (Version 1)
Quarter: 2014Q1

REPORT INFORMATION
  Report Type: Report from Study
  Country: US (occurrence: US)
  Receive Date: 20140304
  Receipt Date: 20140304
  Transmission Date: 20141002
  Serious: Yes (Other)
  Sender: FDA-Public Use
  Company Number: US-ROCHE-1331507

PATIENT
  Sex: Male

DRUGS (11)
  1. LUCENTIS [Suspect]
     Indication: MACULAR DEGENERATION
     Route: 050
     Dates: start: 20110720
  2. LANTUS [Concomitant]
  3. FUROSEMIDE [Concomitant]
  4. CARVEDILOL [Concomitant]
     Route: 065
  5. AMLODIPINE BESYLATE [Concomitant]
  6. ISOSORBIDE MONONITRATE [Concomitant]
     Route: 065
  7. SIMVASTATIN [Concomitant]
  8. HYDRALAZINE HCL [Concomitant]
  9. LORATADINE [Concomitant]
  10. PRAVASTATIN SODIUM [Concomitant]
  11. RENVELA [Concomitant]

REACTIONS (5)
  - Vitreous floaters [Unknown]
  - Eyelid oedema [Unknown]
  - Vision blurred [Unknown]
  - Vitreous haemorrhage [Unknown]
  - Eye swelling [Unknown]
